FAERS Safety Report 18681326 (Version 1)
Quarter: 2020Q4

REPORT INFORMATION
  Report Type: Spontaneous
  Country: US (occurrence: US)
  Receive Date: 20201228
  Receipt Date: 20201228
  Transmission Date: 20210114
  Serious: Yes (Hospitalization)
  Sender: FDA-Public Use
  Company Number: None

PATIENT
  Age: 76 Year
  Sex: Female

DRUGS (1)
  1. GLEEVEC [Suspect]
     Active Substance: IMATINIB MESYLATE
     Indication: BREAST CANCER
     Route: 048
     Dates: start: 201112

REACTIONS (2)
  - Blood pressure abnormal [None]
  - Cardiac disorder [None]

NARRATIVE: CASE EVENT DATE: 20201214
